FAERS Safety Report 14573190 (Version 1)
Quarter: 2018Q1

REPORT INFORMATION
  Report Type: Spontaneous
  Country: FR (occurrence: FR)
  Receive Date: 20180226
  Receipt Date: 20180226
  Transmission Date: 20180509
  Serious: Yes (Hospitalization)
  Sender: FDA-Public Use
  Company Number: FR-TEVA-2018-FR-860466

PATIENT
  Age: 73 Year
  Sex: Female
  Weight: 84 kg

DRUGS (1)
  1. CARBOPLATIN. [Suspect]
     Active Substance: CARBOPLATIN
     Indication: TRANSITIONAL CELL CARCINOMA
     Route: 041
     Dates: start: 20171116, end: 20171116

REACTIONS (3)
  - Infusion site pain [Recovered/Resolved]
  - Infusion site extravasation [Recovered/Resolved]
  - Infusion site oedema [Recovered/Resolved]

NARRATIVE: CASE EVENT DATE: 20171116
